FAERS Safety Report 6971853-8 (Version None)
Quarter: 2010Q3

REPORT INFORMATION
  Report Type: 
  Country: None (occurrence: None)
  Receive Date: 20100908
  Receipt Date: 20100908
  Transmission Date: 20110219
  Serious: Yes (Hospitalization)
  Sender: FDA-Public Use
  Company Number: None

PATIENT
  Sex: Male
  Weight: 133.4 kg

DRUGS (1)
  1. VANCOMYCIN HYDROCHLORIDE [Suspect]

REACTIONS (1)
  - RENAL FAILURE ACUTE [None]
